FAERS Safety Report 4464816-8 (Version None)
Quarter: 2004Q4

REPORT INFORMATION
  Report Type: 
  Country: None (occurrence: None)
  Receive Date: 20041004
  Receipt Date: 20030923
  Transmission Date: 20050328
  Serious: No
  Sender: FDA-Public Use
  Company Number: US-GLAXOSMITHKLINE-A0427024A

PATIENT
  Age: 64 Year
  Sex: Male

DRUGS (10)
  1. COREG [Suspect]
     Indication: CARDIOMYOPATHY
     Dosage: 6.25MG TWICE PER DAY
     Route: 048
     Dates: start: 20030712
  2. METFORMIN [Concomitant]
  3. LISINOPRIL [Concomitant]
  4. DIGOXIN [Concomitant]
  5. VITAMIN E [Concomitant]
  6. VITAMIN C [Concomitant]
  7. VITAMIN D [Concomitant]
  8. VITAMIN B COMPLEX CAP [Concomitant]
  9. CHROMIUM [Concomitant]
  10. GLUCOSAMINE + CHONDROITIN [Concomitant]

REACTIONS (3)
  - BACK PAIN [None]
  - HOARSENESS [None]
  - RHINORRHOEA [None]
